FAERS Safety Report 17375924 (Version 1)
Quarter: 2020Q1

REPORT INFORMATION
  Report Type: Spontaneous
  Country: MX (occurrence: MX)
  Receive Date: 20200206
  Receipt Date: 20200206
  Transmission Date: 20200409
  Serious: Yes (Other)
  Sender: FDA-Public Use
  Company Number: MX-TERSERA THERAPEUTICS LLC-2020TRS000266

PATIENT

DRUGS (4)
  1. METOPROLOL. [Concomitant]
     Active Substance: METOPROLOL
     Indication: HYPERTENSION
     Dosage: 1 TABLET AT NOON
     Route: 065
  2. LOSARTAN. [Concomitant]
     Active Substance: LOSARTAN
     Indication: HYPERTENSION
     Dosage: 50 MG 1 TABLET EVERY 12 HOURS
     Route: 065
  3. PIROXICAM. [Concomitant]
     Active Substance: PIROXICAM
     Indication: SCIATICA
     Dosage: 20 MG 1 TABLET EVERY 12 HOURS
     Route: 065
  4. ZOLADEX [Suspect]
     Active Substance: GOSERELIN ACETATE
     Indication: PROSTATE CANCER
     Dosage: 10.8 MILLIGRAM, EVERY 3 MONTHS
     Route: 058
     Dates: start: 201901

REACTIONS (15)
  - Muscular weakness [Unknown]
  - Administration site discomfort [Recovered/Resolved]
  - Pain in extremity [Unknown]
  - Feeling abnormal [Unknown]
  - Sciatica [Unknown]
  - Administration site pain [Unknown]
  - Gait disturbance [Unknown]
  - Sleep disorder [Unknown]
  - Musculoskeletal disorder [Unknown]
  - Injury associated with device [Recovered/Resolved]
  - Administration site bruise [Not Recovered/Not Resolved]
  - Product prescribing error [Unknown]
  - Arthralgia [Unknown]
  - Bone pain [Not Recovered/Not Resolved]
  - Musculoskeletal pain [Unknown]

NARRATIVE: CASE EVENT DATE: 201901
